FAERS Safety Report 11344017 (Version 1)
Quarter: 2015Q3

REPORT INFORMATION
  Report Type: Spontaneous
  Country: US (occurrence: US)
  Receive Date: 20150806
  Receipt Date: 20150806
  Transmission Date: 20151125
  Serious: Yes (Hospitalization, Other)
  Sender: FDA-Public Use
  Company Number: US-JNJFOC-20150802903

PATIENT
  Age: 74 Year
  Sex: Female

DRUGS (19)
  1. SEPTRA [Concomitant]
     Active Substance: SULFAMETHOXAZOLE\TRIMETHOPRIM
  2. AMITRIPTYLINE [Concomitant]
     Active Substance: AMITRIPTYLINE
  3. MUCINEX [Concomitant]
     Active Substance: GUAIFENESIN
  4. DOXYCYCLINE. [Concomitant]
     Active Substance: DOXYCYCLINE
  5. BETHANECHOL [Concomitant]
     Active Substance: BETHANECHOL
  6. GAS-X [Concomitant]
     Active Substance: DIMETHICONE
  7. CO-Q10 [Concomitant]
  8. MAGNESIUM [Concomitant]
     Active Substance: MAGNESIUM
  9. CELEXA [Concomitant]
     Active Substance: CITALOPRAM HYDROBROMIDE
  10. ZANTAC [Concomitant]
     Active Substance: RANITIDINE HYDROCHLORIDE
  11. MORPHINE [Concomitant]
     Active Substance: MORPHINE
  12. CITRACAL [Concomitant]
     Active Substance: CALCIUM CITRATE
  13. MSM [Concomitant]
     Active Substance: DIMETHYL SULFONE
  14. IMBRUVICA [Suspect]
     Active Substance: IBRUTINIB
     Indication: CHRONIC LYMPHOCYTIC LEUKAEMIA
     Route: 048
     Dates: start: 20140718
  15. NEURONTIN [Concomitant]
     Active Substance: GABAPENTIN
  16. OXYCODONE [Concomitant]
     Active Substance: OXYCODONE
  17. ALEVE [Concomitant]
     Active Substance: NAPROXEN SODIUM
  18. ZINC [Concomitant]
     Active Substance: ZINC\ZINC CHLORIDE
  19. CIPRO [Concomitant]
     Active Substance: CIPROFLOXACIN HYDROCHLORIDE

REACTIONS (7)
  - Intervertebral disc protrusion [Unknown]
  - Gastrointestinal haemorrhage [Recovered/Resolved]
  - Rectal haemorrhage [Recovered/Resolved]
  - Back pain [Unknown]
  - Oesophageal rupture [Unknown]
  - Peripheral swelling [Unknown]
  - Haematemesis [Recovered/Resolved]

NARRATIVE: CASE EVENT DATE: 201504
